FAERS Safety Report 8817831 (Version 1)
Quarter: 2012Q4

REPORT INFORMATION
  Report Type: 
  Country: US (occurrence: US)
  Receive Date: 20121004
  Receipt Date: 20121004
  Transmission Date: 20130627
  Serious: Yes (Death, Hospitalization)
  Sender: FDA-Public Use
  Company Number: US-ROCHE-1131464

PATIENT
  Sex: Male

DRUGS (3)
  1. RITUXAN [Suspect]
     Indication: MYASTHENIA GRAVIS
     Route: 042
     Dates: start: 20101216, end: 20101216
  2. RITUXAN [Suspect]
     Indication: OFF LABEL USE
     Route: 042
     Dates: start: 20101229, end: 20101229
  3. RITUXAN [Suspect]
     Indication: RHEUMATOID ARTHRITIS

REACTIONS (6)
  - Death [Fatal]
  - Disorientation [Unknown]
  - Asthenia [Unknown]
  - Dehydration [Unknown]
  - Renal injury [Unknown]
  - Myasthenia gravis [Unknown]
